FAERS Safety Report 7295688-4 (Version None)
Quarter: 2011Q1

REPORT INFORMATION
  Report Type: 
  Country: None (occurrence: None)
  Receive Date: 20110216
  Receipt Date: 20101230
  Transmission Date: 20110831
  Serious: No
  Sender: FDA-Public Use
  Company Number: US-ABBOTT-11P-163-0694599-00

PATIENT
  Sex: Female
  Weight: 74.002 kg

DRUGS (2)
  1. MUSCLE RELAXANTS [Concomitant]
     Indication: MUSCLE RELAXANT THERAPY
  2. SIMCOR [Suspect]
     Indication: HYPERLIPIDAEMIA
     Dosage: 500/20MG
     Dates: start: 20101229

REACTIONS (2)
  - MIDDLE INSOMNIA [None]
  - FLUSHING [None]
